FAERS Safety Report 24760697 (Version 1)
Quarter: 2024Q4

REPORT INFORMATION
  Report Type: Spontaneous
  Country: CA (occurrence: CA)
  Receive Date: 20241220
  Receipt Date: 20241220
  Transmission Date: 20250115
  Serious: Yes (Other)
  Sender: PFIZER
  Company Number: CA-PFIZER INC-PV202400165732

PATIENT
  Age: 79 Year
  Sex: Female

DRUGS (1)
  1. IBRANCE [Suspect]
     Active Substance: PALBOCICLIB
     Indication: Breast cancer metastatic
     Dosage: 125 MG, 21 DAYS ON, 7 DAYS OFF
     Dates: start: 20190808

REACTIONS (2)
  - Renal impairment [Not Recovered/Not Resolved]
  - Blood creatine abnormal [Not Recovered/Not Resolved]
